FAERS Safety Report 6236786-3 (Version None)
Quarter: 2009Q2

REPORT INFORMATION
  Report Type: 
  Country: None (occurrence: None)
  Receive Date: 20090619
  Receipt Date: 20090612
  Transmission Date: 20091009
  Serious: Yes (Other)
  Sender: FDA-Public Use
  Company Number: PHEH2009US06131

PATIENT
  Sex: Female

DRUGS (19)
  1. RECLAST [Suspect]
     Dosage: UNK
     Dates: start: 20090605
  2. VESICARE [Concomitant]
     Dosage: 5 MG, UNK
  3. PREDNISONE [Concomitant]
     Dosage: 20 MG, UNK
  4. TIZANIDINE [Concomitant]
     Dosage: 2 MG, UNK
  5. OXYCODONE HCL [Concomitant]
     Dosage: 10 MG, UNK
  6. ADVAIR HFA [Concomitant]
  7. SPIRIVA [Concomitant]
  8. LASIX [Concomitant]
     Dosage: 40 MG, UNK
  9. SYNTHROID [Concomitant]
     Dosage: 0.088 MG, UNK
  10. FOLIC ACID [Concomitant]
     Dosage: 3 MG, UNK
  11. ACIPHEX [Concomitant]
     Dosage: 20 MG, UNK
  12. REGLAN [Concomitant]
     Dosage: 5 MG, UNK
  13. PAREGORIC [Concomitant]
     Dosage: 2 MG, UNK
  14. TAMBOCOR [Concomitant]
     Dosage: 50 MG, UNK
  15. ALDACTONE [Concomitant]
     Dosage: 25 MG, UNK
  16. VERAPAMIL [Concomitant]
     Dosage: 80 MG, UNK
  17. ESTROGEN NOS [Concomitant]
  18. NORVASC [Concomitant]
     Dosage: 10 MG, UNK
  19. EMBRYO INJECTIONS [Concomitant]

REACTIONS (3)
  - ARTHRALGIA [None]
  - PAIN IN EXTREMITY [None]
  - PNEUMONIA [None]
